FAERS Safety Report 4868873-6 (Version None)
Quarter: 2005Q4

REPORT INFORMATION
  Report Type: 
  Country: None (occurrence: None)
  Receive Date: 20051229
  Receipt Date: 20050204
  Transmission Date: 20060501
  Serious: Yes (Hospitalization)
  Sender: FDA-Public Use
  Company Number: US-MERCK-0502USA00646

PATIENT
  Age: 49 Year
  Sex: Male
  Weight: 75 kg

DRUGS (9)
  1. VIOXX [Suspect]
     Indication: ARTHRITIS
     Route: 048
     Dates: start: 20020402, end: 20040628
  2. VIOXX [Suspect]
     Route: 048
     Dates: start: 20020718
  3. VIOXX [Suspect]
     Indication: ARTHRALGIA
     Route: 048
     Dates: start: 20020402, end: 20040628
  4. VIOXX [Suspect]
     Route: 048
     Dates: start: 20020718
  5. LIPITOR [Concomitant]
     Route: 048
  6. PLAVIX [Concomitant]
     Route: 048
  7. LOPRESSOR [Concomitant]
     Route: 048
  8. VASOTEC [Concomitant]
     Route: 048
  9. ASPIRIN [Concomitant]
     Route: 048

REACTIONS (30)
  - ABDOMINAL PAIN UPPER [None]
  - ACUTE MYOCARDIAL INFARCTION [None]
  - ANGINA PECTORIS [None]
  - BLOOD GLUCOSE INCREASED [None]
  - CARDIAC DISORDER [None]
  - CARDIAC FAILURE [None]
  - CARDIAC MURMUR [None]
  - CAROTID ARTERY STENOSIS [None]
  - CHEST PAIN [None]
  - CORONARY ARTERY DISEASE [None]
  - DYSPNOEA [None]
  - ERECTILE DYSFUNCTION [None]
  - FATIGUE [None]
  - GASTRIC ULCER [None]
  - GASTRITIS [None]
  - HYPERHIDROSIS [None]
  - HYPERTENSION [None]
  - HYPERTENSIVE NEPHROPATHY [None]
  - INSOMNIA [None]
  - INTERNATIONAL NORMALISED RATIO INCREASED [None]
  - INTESTINAL POLYP [None]
  - MITRAL VALVE INCOMPETENCE [None]
  - MITRAL VALVE PROLAPSE [None]
  - MIXED HYPERLIPIDAEMIA [None]
  - MYOCARDIAL ISCHAEMIA [None]
  - PERICARDIAL DISEASE [None]
  - PLEURAL EFFUSION [None]
  - PNEUMOTHORAX [None]
  - URINARY RETENTION [None]
  - VENTRICULAR TACHYCARDIA [None]
